FAERS Safety Report 12604760 (Version 2)
Quarter: 2016Q3

REPORT INFORMATION
  Report Type: Spontaneous
  Country: US (occurrence: US)
  Receive Date: 20160728
  Receipt Date: 20160830
  Transmission Date: 20161109
  Serious: No
  Sender: FDA-Public Use
  Company Number: US-PFIZER INC-2016328998

PATIENT
  Age: 47 Year
  Sex: Female

DRUGS (2)
  1. NORVASC [Suspect]
     Active Substance: AMLODIPINE BESYLATE
     Indication: BLOOD PRESSURE ABNORMAL
     Dosage: UNK UNK, 1X/DAY
     Route: 048
     Dates: start: 201009, end: 201009
  2. PROZAC [Suspect]
     Active Substance: FLUOXETINE HYDROCHLORIDE
     Indication: DEPRESSION
     Dosage: UNK UNK, 1X/DAY
     Route: 048
     Dates: start: 201009, end: 201009

REACTIONS (3)
  - Urticaria [Recovered/Resolved]
  - Drug hypersensitivity [Unknown]
  - Dyspnoea [Recovered/Resolved]

NARRATIVE: CASE EVENT DATE: 201009
